FAERS Safety Report 5460986-3 (Version None)
Quarter: 2007Q3

REPORT INFORMATION
  Report Type: 
  Country: None (occurrence: None)
  Receive Date: 20070822
  Receipt Date: 20070317
  Transmission Date: 20080115
  Serious: Yes (Other)
  Sender: FDA-Public Use
  Company Number: 2007021443

PATIENT
  Sex: Female
  Weight: 88.5 kg

DRUGS (6)
  1. NORVASC [Suspect]
     Indication: NEPHROPATHY
     Dosage: 5 MG ( 5 MG, 1 IN 24 HR)
     Dates: start: 19970101, end: 20070101
  2. SYNTHROID [Concomitant]
  3. HYDRALAZINE HCL [Concomitant]
  4. LASIX [Concomitant]
  5. METOPROLOL TARTRATE [Concomitant]
  6. COZAAR [Concomitant]

REACTIONS (6)
  - BLOOD CREATININE INCREASED [None]
  - BLOOD UREA INCREASED [None]
  - DEPRESSED MOOD [None]
  - HAEMOGLOBIN DECREASED [None]
  - OEDEMA PERIPHERAL [None]
  - WEIGHT INCREASED [None]
